FAERS Safety Report 10339552 (Version 2)
Quarter: 2014Q3

REPORT INFORMATION
  Report Type: Spontaneous
  Country: US (occurrence: US)
  Receive Date: 20140724
  Receipt Date: 20140724
  Transmission Date: 20150326
  Serious: No
  Sender: FDA-Public Use
  Company Number: US-MYLANLABS-2013S1020573

PATIENT
  Age: 53 Year
  Sex: Male
  Weight: 89.81 kg

DRUGS (2)
  1. ENALAPRIL MALEATE. [Suspect]
     Active Substance: ENALAPRIL MALEATE
     Indication: BLOOD PRESSURE INCREASED
     Dosage: 20 MG,QD
     Route: 048
     Dates: start: 201101, end: 20121212
  2. SIMVASTATIN. [Suspect]
     Active Substance: SIMVASTATIN
     Indication: BLOOD CHOLESTEROL INCREASED
     Dosage: UNK UNK,QD
     Route: 048
     Dates: end: 201211

REACTIONS (4)
  - Porcelain gallbladder [Not Recovered/Not Resolved]
  - Hepatic enzyme increased [Not Recovered/Not Resolved]
  - Tremor [Recovered/Resolved]
  - Liver injury [Not Recovered/Not Resolved]

NARRATIVE: CASE EVENT DATE: 201211
